FAERS Safety Report 18381258 (Version 1)
Quarter: 2020Q4

REPORT INFORMATION
  Report Type: Spontaneous
  Country: CN (occurrence: CN)
  Receive Date: 20201014
  Receipt Date: 20201014
  Transmission Date: 20210114
  Serious: Yes (Life-Threatening, Other)
  Sender: FDA-Public Use
  Company Number: CN-LUPIN PHARMACEUTICALS INC.-2020-07354

PATIENT
  Weight: 3.57 kg

DRUGS (2)
  1. CEFTRIAXONE. [Suspect]
     Active Substance: CEFTRIAXONE
     Indication: LISTERIOSIS
     Dosage: UNK
     Route: 064
  2. METRONIDAZOLE. [Suspect]
     Active Substance: METRONIDAZOLE
     Indication: LISTERIOSIS
     Dosage: UNK
     Route: 064

REACTIONS (12)
  - Foetal distress syndrome [Unknown]
  - Sepsis [Unknown]
  - Anaemia [Unknown]
  - Myocardial infarction [Unknown]
  - Listeriosis [Unknown]
  - Hyperlactacidaemia [Unknown]
  - Encephalopathy [Unknown]
  - Pneumonia [Unknown]
  - Thrombocytopenia [Unknown]
  - Meconium aspiration syndrome [Unknown]
  - Foetal exposure during pregnancy [Unknown]
  - Intrauterine infection [Unknown]
